FAERS Safety Report 24146108 (Version 1)
Quarter: 2024Q3

REPORT INFORMATION
  Report Type: Other
  Country: IN (occurrence: IN)
  Receive Date: 20240729
  Receipt Date: 20240729
  Transmission Date: 20241016
  Serious: Yes (Other)
  Sender: BIONPHARMA
  Company Number: IN-Bion-013545

PATIENT
  Age: 24 Year
  Sex: Male

DRUGS (1)
  1. DICLOFENAC POTASSIUM [Suspect]
     Active Substance: DICLOFENAC POTASSIUM
     Indication: Product used for unknown indication
     Dosage: INJECTION
     Route: 030

REACTIONS (2)
  - Gangrene [Recovering/Resolving]
  - Product administration error [Unknown]
